FAERS Safety Report 22101312 (Version 1)
Quarter: 2023Q1

REPORT INFORMATION
  Report Type: Spontaneous
  Country: KR (occurrence: KR)
  Receive Date: 20230316
  Receipt Date: 20230316
  Transmission Date: 20230418
  Serious: Yes (Hospitalization, Other)
  Sender: FDA-Public Use
  Company Number: None

PATIENT
  Age: 13 Year
  Sex: Male
  Weight: 36.3 kg

DRUGS (1)
  1. NAPROXEN [Suspect]
     Active Substance: NAPROXEN
     Indication: Chronic recurrent multifocal osteomyelitis
     Route: 065

REACTIONS (3)
  - Psoriasis [Recovering/Resolving]
  - Crohn^s disease [Recovering/Resolving]
  - Treatment failure [Unknown]
